FAERS Safety Report 16624620 (Version 17)
Quarter: 2025Q1

REPORT INFORMATION
  Report Type: Report from Study
  Country: CA (occurrence: CA)
  Receive Date: 20190724
  Receipt Date: 20250205
  Transmission Date: 20250409
  Serious: Yes (Life-Threatening, Hospitalization, Other)
  Sender: ROCHE
  Company Number: CA-002147023-PHHY2019CA147385

PATIENT
  Age: 50 Year
  Sex: Female

DRUGS (5)
  1. XOLAIR [Suspect]
     Active Substance: OMALIZUMAB
     Indication: Chronic spontaneous urticaria
     Route: 058
     Dates: start: 20190522
  2. XOLAIR [Suspect]
     Active Substance: OMALIZUMAB
     Route: 058
     Dates: start: 20190522
  3. XOLAIR [Suspect]
     Active Substance: OMALIZUMAB
     Dosage: 300 MG, EVERY 4 WEEKS
     Route: 058
     Dates: start: 20190712
  4. XOLAIR [Suspect]
     Active Substance: OMALIZUMAB
     Route: 058
     Dates: start: 20241112
  5. RUPATADINE FUMARATE [Concomitant]
     Active Substance: RUPATADINE FUMARATE
     Indication: Urticaria
     Dosage: 1 DF, TID
     Route: 048
     Dates: start: 20181031

REACTIONS (19)
  - Feeling abnormal [Unknown]
  - Anaphylactic shock [Unknown]
  - Anaphylactic reaction [Recovering/Resolving]
  - Hypersensitivity [Unknown]
  - Cough [Unknown]
  - Erythema [Unknown]
  - Scratch [Unknown]
  - Oxygen saturation decreased [Unknown]
  - Blood pressure decreased [Unknown]
  - Heart rate increased [Recovering/Resolving]
  - Protrusion tongue [Unknown]
  - Perfume sensitivity [Unknown]
  - Spinal stenosis [Unknown]
  - Neck pain [Unknown]
  - Back pain [Unknown]
  - Off label use [Unknown]
  - Malaise [Unknown]
  - Near death experience [Unknown]
  - Illness [Unknown]

NARRATIVE: CASE EVENT DATE: 20190619
